FAERS Safety Report 19525404 (Version 2)
Quarter: 2021Q3

REPORT INFORMATION
  Report Type: Report from Study
  Country: None (occurrence: FI)
  Receive Date: 20210712
  Receipt Date: 20210803
  Transmission Date: 20211014
  Serious: Yes (Other)
  Sender: FDA-Public Use
  Company Number: FI-ABBVIE-21K-055-3983513-00

PATIENT
  Age: 81 Year
  Sex: Male

DRUGS (5)
  1. DUODOPA [Suspect]
     Active Substance: CARBIDOPA\LEVODOPA
  2. BETMIGA [Concomitant]
     Active Substance: MIRABEGRON
     Indication: POLLAKIURIA
     Dates: start: 2016
  3. DUODOPA [Suspect]
     Active Substance: CARBIDOPA\LEVODOPA
     Indication: PARKINSON^S DISEASE
     Dosage: MD 11 ML; 6.1 ML/H; EXTRA 0.5 ML
     Route: 050
     Dates: start: 20210602
  4. TREXAN [Concomitant]
     Indication: RHEUMATOID ARTHRITIS
     Route: 048
  5. SALAZOPYRIN [Concomitant]
     Active Substance: SULFASALAZINE
     Indication: RHEUMATOID ARTHRITIS
     Route: 048

REACTIONS (5)
  - Depressed level of consciousness [Not Recovered/Not Resolved]
  - Dizziness [Not Recovered/Not Resolved]
  - Blood pressure decreased [Not Recovered/Not Resolved]
  - Stoma site discharge [Recovering/Resolving]
  - Device use issue [Recovered/Resolved]

NARRATIVE: CASE EVENT DATE: 2021
